FAERS Safety Report 16954613 (Version 2)
Quarter: 2019Q4

REPORT INFORMATION
  Report Type: Spontaneous
  Country: US (occurrence: US)
  Receive Date: 20191024
  Receipt Date: 20191226
  Transmission Date: 20200122
  Serious: No
  Sender: FDA-Public Use
  Company Number: US-LUPIN PHARMACEUTICALS INC.-2019-06686

PATIENT
  Age: 61 Year
  Sex: Female
  Weight: 56.24 kg

DRUGS (1)
  1. RANOLAZINE EXTENDED RELEASE TABLET 500 MG [Suspect]
     Active Substance: RANOLAZINE
     Indication: ANGINA PECTORIS
     Dosage: UNK UNK, BID
     Route: 048
     Dates: start: 20190617

REACTIONS (5)
  - Glossodynia [Not Recovered/Not Resolved]
  - Lip dry [Not Recovered/Not Resolved]
  - Lip swelling [Not Recovered/Not Resolved]
  - Dysphagia [Not Recovered/Not Resolved]
  - Chapped lips [Not Recovered/Not Resolved]

NARRATIVE: CASE EVENT DATE: 20190717
